FAERS Safety Report 9288261 (Version 1)
Quarter: 2013Q2

REPORT INFORMATION
  Report Type: Spontaneous
  Country: US (occurrence: None)
  Receive Date: 20130513
  Receipt Date: 20130513
  Transmission Date: 20140414
  Serious: No
  Sender: FDA-Public Use
  Company Number: None

PATIENT
  Age: 51 Year
  Sex: Female

DRUGS (1)
  1. QSYMIA [Suspect]
     Indication: WEIGHT CONTROL
     Route: 048

REACTIONS (2)
  - Heart rate increased [None]
  - Blood pressure increased [None]
